FAERS Safety Report 4592525-3 (Version None)
Quarter: 2005Q1

REPORT INFORMATION
  Report Type: 
  Country: None (occurrence: None)
  Receive Date: 20050222
  Receipt Date: 20050210
  Transmission Date: 20050727
  Serious: Yes (Death)
  Sender: FDA-Public Use
  Company Number: RENA-11278

PATIENT
  Age: 75 Year
  Sex: Male

DRUGS (1)
  1. RENAGEL [Suspect]
     Indication: HYPERPHOSPHATAEMIA

REACTIONS (3)
  - DECREASED APPETITE [None]
  - ISCHAEMIC CARDIOMYOPATHY [None]
  - MALNUTRITION [None]
